FAERS Safety Report 5749063-1 (Version None)
Quarter: 2008Q2

REPORT INFORMATION
  Report Type: 
  Country: None (occurrence: None)
  Receive Date: 20080527
  Receipt Date: 20080523
  Transmission Date: 20081010
  Serious: Yes (Hospitalization)
  Sender: FDA-Public Use
  Company Number: BE-BRISTOL-MYERS SQUIBB COMPANY-14122105

PATIENT
  Age: 42 Year
  Sex: Female
  Weight: 43 kg

DRUGS (4)
  1. PACLITAXEL [Suspect]
     Indication: OVARIAN CANCER
     Dosage: STARTED ON 13FEB08,175 MG/M2 DAY ONE EVERY 3 WEEKS
     Route: 042
     Dates: start: 20080305, end: 20080305
  2. CARBOPLATIN [Suspect]
     Indication: OVARIAN EPITHELIAL CANCER
     Dosage: 575 MG (AUC 5) ONE EVERY 21 DAYS. STARTED ON 13FEB08
     Route: 042
     Dates: start: 20080305, end: 20080305
  3. PLACEBO [Concomitant]
     Indication: OVARIAN EPITHELIAL CANCER
     Dosage: STARTED ON 12-FEB-08 WITH 500 MG OF BLINDED STUDY DRUG/PLACEBLO.
     Route: 048
     Dates: start: 20080308, end: 20080308
  4. DEXAMETHASONE TAB [Concomitant]

REACTIONS (2)
  - CONSTIPATION [None]
  - SMALL INTESTINAL OBSTRUCTION [None]
